FAERS Safety Report 6817910-8 (Version None)
Quarter: 2010Q3

REPORT INFORMATION
  Report Type: 
  Country: None (occurrence: None)
  Receive Date: 20100706
  Receipt Date: 20100624
  Transmission Date: 20110219
  Serious: Yes (Hospitalization)
  Sender: FDA-Public Use
  Company Number: US-CELGENEUS-163-20785-10042170

PATIENT
  Sex: Male

DRUGS (19)
  1. THALOMID [Suspect]
     Indication: MULTIPLE MYELOMA
     Route: 048
     Dates: start: 20100211
  2. THALOMID [Suspect]
     Route: 048
     Dates: start: 20100301, end: 20100618
  3. THALOMID [Suspect]
     Route: 048
     Dates: start: 20100618
  4. DECADRON [Suspect]
     Indication: MULTIPLE MYELOMA
     Route: 048
     Dates: start: 20100301
  5. ASPIRIN [Suspect]
     Indication: MULTIPLE MYELOMA
     Route: 065
     Dates: start: 20100301
  6. ZOMETA [Suspect]
     Indication: MULTIPLE MYELOMA
     Route: 051
     Dates: start: 20100301
  7. METFORMIN HCL [Concomitant]
     Indication: DIABETES MELLITUS
     Route: 048
  8. JANUVIA [Concomitant]
     Indication: DIABETES MELLITUS
     Route: 048
  9. SINEMET [Concomitant]
     Indication: PARKINSON'S DISEASE
     Dosage: 50/200
     Route: 048
  10. SINEMET [Concomitant]
     Dosage: 10/100
     Route: 048
  11. LASIX [Concomitant]
     Route: 048
  12. LASIX [Concomitant]
     Route: 048
  13. FERGON [Concomitant]
     Indication: IRON DEFICIENCY
     Route: 065
     Dates: start: 20100201
  14. ALDACTONE [Concomitant]
     Route: 048
  15. PROSCAR [Concomitant]
     Route: 048
     Dates: start: 20090101
  16. HYDROCORTISONE [Concomitant]
     Indication: ADRENAL INSUFFICIENCY
     Route: 048
     Dates: start: 20100602
  17. FLOMAX [Concomitant]
     Route: 048
     Dates: start: 20100501
  18. FOLATE [Concomitant]
     Route: 065
  19. FLUIDS [Concomitant]
     Indication: PRODUCT USED FOR UNKNOWN INDICATION
     Route: 051
     Dates: start: 20100601

REACTIONS (6)
  - CONSTIPATION [None]
  - CONTUSION [None]
  - HYPOTENSION [None]
  - METABOLIC ENCEPHALOPATHY [None]
  - POLLAKIURIA [None]
  - UNEVALUABLE EVENT [None]
